FAERS Safety Report 5040959-5 (Version None)
Quarter: 2006Q2

REPORT INFORMATION
  Report Type: 
  Country: None (occurrence: None)
  Receive Date: 20060601
  Receipt Date: 20060306
  Transmission Date: 20061013
  Serious: No
  Sender: FDA-Public Use
  Company Number: 2006PV009794

PATIENT
  Age: 62 Year
  Sex: Female
  Weight: 139.2543 kg

DRUGS (7)
  1. BYETTA [Suspect]
     Indication: DIABETES MELLITUS NON-INSULIN-DEPENDENT
     Dosage: SEE IMAGE
     Route: 058
     Dates: start: 20051208, end: 20060107
  2. BYETTA [Suspect]
     Indication: DIABETES MELLITUS NON-INSULIN-DEPENDENT
     Dosage: SEE IMAGE
     Route: 058
     Dates: start: 20060108, end: 20060201
  3. PROMETHAZINE [Suspect]
     Dosage: 25 MG;Q6H;PO
     Route: 048
     Dates: start: 20051220, end: 20060201
  4. AVANDAMET [Concomitant]
  5. AMARYL [Concomitant]
  6. PRANDIN [Concomitant]
  7. PLAVIX [Concomitant]

REACTIONS (4)
  - CONTUSION [None]
  - DECREASED APPETITE [None]
  - NAUSEA [None]
  - WEIGHT DECREASED [None]
